FAERS Safety Report 25437908 (Version 1)
Quarter: 2025Q2

REPORT INFORMATION
  Report Type: Report from Study
  Country: CA (occurrence: CA)
  Receive Date: 20250616
  Receipt Date: 20250616
  Transmission Date: 20250717
  Serious: Yes (Other)
  Sender: CELLTRION
  Company Number: CA-CELLTRION INC.-2024CA028201

PATIENT

DRUGS (2)
  1. USTEKINUMAB [Suspect]
     Active Substance: USTEKINUMAB
     Indication: Crohn^s disease
     Dosage: 90 MG, EVERY 4 WEEKS (TREATMENT NOT STARTED: : FIRST DOSE 09/12/2024)
     Route: 058
  2. USTEKINUMAB [Suspect]
     Active Substance: USTEKINUMAB
     Dosage: 90 MG, EVERY 4 WEEKS
     Route: 058
     Dates: start: 20250203

REACTIONS (5)
  - Vertigo [Unknown]
  - Dizziness [Unknown]
  - Off label use [Unknown]
  - Chalazion [Unknown]
  - Arthralgia [Unknown]

NARRATIVE: CASE EVENT DATE: 20250606
